FAERS Safety Report 8973872 (Version 1)
Quarter: 2012Q4

REPORT INFORMATION
  Report Type: 
  Country: BR (occurrence: BR)
  Receive Date: 20121219
  Receipt Date: 20121219
  Transmission Date: 20130627
  Serious: Yes (Death, Hospitalization)
  Sender: FDA-Public Use
  Company Number: BR-009507513-1212BRA006556

PATIENT
  Age: 93 Year
  Sex: Female
  Weight: 58 kg

DRUGS (1)
  1. JANUMET [Suspect]
     Indication: TYPE 2 DIABETES MELLITUS
     Dosage: UNK
     Route: 048
     Dates: start: 201208, end: 20121211

REACTIONS (1)
  - Pneumonia bacterial [Fatal]
